FAERS Safety Report 17673155 (Version 2)
Quarter: 2020Q2

REPORT INFORMATION
  Report Type: Spontaneous
  Country: US (occurrence: US)
  Receive Date: 20200416
  Receipt Date: 20200505
  Transmission Date: 20200713
  Serious: No
  Sender: FDA-Public Use
  Company Number: US-ASTRAZENECA-2020SE49815

PATIENT
  Age: 22485 Day
  Sex: Female

DRUGS (1)
  1. BYDUREON [Suspect]
     Active Substance: EXENATIDE
     Indication: TYPE 2 DIABETES MELLITUS
     Route: 058
     Dates: start: 2019

REACTIONS (5)
  - Visual impairment [Unknown]
  - Foreign body in eye [Unknown]
  - Wrong technique in device usage process [Recovered/Resolved]
  - Fear [Unknown]
  - Device malfunction [Unknown]

NARRATIVE: CASE EVENT DATE: 20200408
